FAERS Safety Report 5296425-5 (Version None)
Quarter: 2007Q2

REPORT INFORMATION
  Report Type: 
  Country: None (occurrence: None)
  Receive Date: 20070413
  Receipt Date: 20070405
  Transmission Date: 20071010
  Serious: Yes (Hospitalization, Other)
  Sender: FDA-Public Use
  Company Number: HQWYE744105APR07

PATIENT
  Age: 52 Year
  Sex: Female

DRUGS (16)
  1. INIPOMP [Suspect]
     Indication: PROPHYLAXIS
     Route: 048
     Dates: start: 20070117, end: 20070204
  2. COLCHIMAX [Suspect]
     Indication: ARTHRALGIA
     Route: 048
     Dates: start: 20070131, end: 20070204
  3. TELZIR [Concomitant]
     Indication: HIV INFECTION
     Dosage: DOSE FORM
     Route: 048
  4. NORVIR [Concomitant]
     Indication: HIV INFECTION
     Dosage: DOSE FORM
     Route: 048
  5. EPIVIR [Concomitant]
     Indication: HIV INFECTION
     Dosage: DOSE FORM
     Route: 048
  6. ZIAGEN [Concomitant]
     Indication: HIV INFECTION
     Dosage: DOSE FORM
     Route: 048
  7. LASIX [Concomitant]
     Indication: RENAL FAILURE CHRONIC
     Dosage: DOSE FORM
     Route: 042
  8. CALCIDIA [Concomitant]
     Route: 048
  9. PRIMPERAN INJ [Concomitant]
     Indication: NAUSEA
     Route: 048
  10. PRIMPERAN INJ [Concomitant]
     Indication: VOMITING
  11. LANTUS [Concomitant]
     Indication: DIABETES MELLITUS
     Dosage: DOSE FORM
     Route: 058
  12. NOVORAPID [Concomitant]
     Indication: DIABETES MELLITUS
     Dosage: DOSE FORM
     Route: 058
  13. LEXOMIL [Concomitant]
     Dosage: DOSE FORM
     Route: 048
  14. ACTRAPID HUMAN [Concomitant]
     Indication: DIABETES MELLITUS
     Dosage: DOSE FORM
     Route: 042
  15. ZYRTEC [Concomitant]
     Dosage: DOSE FORM
     Route: 048
     Dates: end: 20070204
  16. NEURONTIN [Suspect]
     Indication: CONVULSION
     Route: 048
     Dates: start: 20070131, end: 20070204

REACTIONS (8)
  - ARTHRALGIA [None]
  - ASTERIXIS [None]
  - COMA [None]
  - CONVULSION [None]
  - ENCEPHALOPATHY [None]
  - MYOCLONUS [None]
  - SOMNOLENCE [None]
  - TONIC CLONIC MOVEMENTS [None]
